FAERS Safety Report 4420319-8 (Version None)
Quarter: 2004Q2

REPORT INFORMATION
  Report Type: 
  Country: None (occurrence: None)
  Receive Date: 20040622
  Receipt Date: 20031010
  Transmission Date: 20050107
  Serious: Yes (Other)
  Sender: FDA-Public Use
  Company Number: US-JNJFOC-20030703577

PATIENT
  Age: 41 Year
  Sex: Male

DRUGS (3)
  1. HALDOL [Suspect]
     Indication: SCHIZOPHRENIA
     Dosage: 10 MG, 1 IN 1 DAY
     Dates: start: 19980101, end: 19980101
  2. PAXIL [Concomitant]
  3. VITAMIN B12 [Concomitant]

REACTIONS (2)
  - EXTRAPYRAMIDAL DISORDER [None]
  - HALLUCINATION [None]
